FAERS Safety Report 24564817 (Version 1)
Quarter: 2024Q4

REPORT INFORMATION
  Report Type: Spontaneous
  Country: US (occurrence: None)
  Receive Date: 20241029
  Receipt Date: 20241029
  Transmission Date: 20250115
  Serious: Yes (Hospitalization, Disabling, Other)
  Sender: Public
  Company Number: None

PATIENT
  Age: 34 Year
  Sex: Female
  Weight: 51.75 kg

DRUGS (8)
  1. CIPROFLOXACIN [Suspect]
     Active Substance: CIPROFLOXACIN
     Indication: Culture wound
     Dosage: FREQUENCY : TWICE A DAY;?
     Route: 048
     Dates: start: 20240506, end: 20240507
  2. ADDERALL [Concomitant]
     Active Substance: AMPHETAMINE ASPARTATE\AMPHETAMINE SULFATE\DEXTROAMPHETAMINE SACCHARATE\DEXTROAMPHETAMINE SULFATE
  3. VITAMIN A [Concomitant]
     Active Substance: VITAMIN A
  4. VITAMIN A [Concomitant]
     Active Substance: VITAMIN A
  5. MAGNESIUM [Concomitant]
     Active Substance: MAGNESIUM
  6. OSTEOBIFLEX [Concomitant]
  7. FISH OIL [Concomitant]
     Active Substance: FISH OIL
  8. VITAMINS [Concomitant]
     Active Substance: VITAMINS

REACTIONS (23)
  - Hyperhidrosis [None]
  - Nausea [None]
  - Presyncope [None]
  - Joint dislocation [None]
  - Fall [None]
  - Asthenia [None]
  - Back pain [None]
  - Paraesthesia [None]
  - Neuropathy peripheral [None]
  - Joint swelling [None]
  - Feeling abnormal [None]
  - Muscle spasms [None]
  - Muscle twitching [None]
  - Feeling of body temperature change [None]
  - Joint noise [None]
  - Connective tissue disorder [None]
  - Thinking abnormal [None]
  - Speech disorder [None]
  - Aphasia [None]
  - Swelling [None]
  - Inflammation [None]
  - Headache [None]
  - Photosensitivity reaction [None]

NARRATIVE: CASE EVENT DATE: 20240506
